FAERS Safety Report 5398880-9 (Version None)
Quarter: 2007Q3

REPORT INFORMATION
  Report Type: 
  Country: None (occurrence: None)
  Receive Date: 20070727
  Receipt Date: 20070719
  Transmission Date: 20080115
  Serious: Yes (Other)
  Sender: FDA-Public Use
  Company Number: PHBS2007BR12241

PATIENT
  Age: 58 Year
  Sex: Female
  Weight: 100 kg

DRUGS (3)
  1. CLORETO DE POTASSIO [Suspect]
     Indication: MUSCLE SPASMS
     Dosage: 1 TABLET/DAY
     Route: 048
  2. CLORETO DE POTASSIO [Suspect]
     Dosage: 4 TABLET/WEEK
     Route: 048
  3. VENOCUR TRIPLEX [Concomitant]
     Dosage: 2 TABLETS/DAY
     Route: 048

REACTIONS (6)
  - ERYTHEMA [None]
  - MUSCLE SPASMS [None]
  - NASOPHARYNGITIS [None]
  - PAIN IN EXTREMITY [None]
  - PYREXIA [None]
  - VARICOSE ULCERATION [None]
